FAERS Safety Report 8290632-5 (Version None)
Quarter: 2012Q2

REPORT INFORMATION
  Report Type: 
  Country: None (occurrence: None)
  Receive Date: 20120417
  Receipt Date: 20120409
  Transmission Date: 20120825
  Serious: Yes (Other)
  Sender: FDA-Public Use
  Company Number: US-MPIJNJ-2012-02462

PATIENT

DRUGS (15)
  1. OXYCONTIN [Concomitant]
     Indication: PRODUCT USED FOR UNKNOWN INDICATION
     Dosage: 30 MG, UNK
  2. OXYCODONE HCL [Concomitant]
     Indication: PAIN
     Dosage: UNK
  3. FLUCONAZOLE [Concomitant]
     Indication: PRODUCT USED FOR UNKNOWN INDICATION
     Dosage: 200 MG, UNK
  4. ALPRAZOLAM [Concomitant]
     Indication: PRODUCT USED FOR UNKNOWN INDICATION
     Dosage: 0.25 MG, UNK
  5. VELCADE [Suspect]
     Indication: MULTIPLE MYELOMA
     Dosage: UNK
     Route: 042
     Dates: start: 20111101
  6. REVLIMID [Suspect]
     Dosage: 15 MG, CYCLIC
     Route: 048
     Dates: start: 20111101
  7. VELCADE [Suspect]
     Dosage: 2.2 MG, UNK
     Route: 058
     Dates: start: 20111101
  8. DEXAMETHASONE [Suspect]
     Dosage: 20 MG, UNK
     Route: 048
     Dates: start: 20111101
  9. ACYCLOVIR [Concomitant]
     Indication: PRODUCT USED FOR UNKNOWN INDICATION
     Dosage: 400 MG, UNK
  10. DEXAMETHASONE [Suspect]
     Indication: MULTIPLE MYELOMA
     Dosage: UNK
     Route: 042
     Dates: start: 20111101
  11. REVLIMID [Suspect]
     Dosage: 10 MG, CYCLIC
     Route: 048
     Dates: start: 20111101
  12. REVLIMID [Suspect]
     Dosage: 20 MG, CYCLIC
     Route: 048
     Dates: start: 20111101
  13. ASPIRIN [Concomitant]
     Indication: PRODUCT USED FOR UNKNOWN INDICATION
     Dosage: 81 MG, QD
     Route: 048
  14. LEXAPRO [Concomitant]
     Indication: PRODUCT USED FOR UNKNOWN INDICATION
     Dosage: 10 MG, QD
  15. REVLIMID [Suspect]
     Indication: MULTIPLE MYELOMA
     Dosage: 25 MG, CYCLIC
     Route: 048
     Dates: start: 20111101

REACTIONS (6)
  - DIZZINESS [None]
  - BALANCE DISORDER [None]
  - TREMOR [None]
  - FATIGUE [None]
  - FALL [None]
  - NEUROPATHY PERIPHERAL [None]
